FAERS Safety Report 5453001-9 (Version None)
Quarter: 2007Q3

REPORT INFORMATION
  Report Type: 
  Country: None (occurrence: None)
  Receive Date: 20070914
  Receipt Date: 20070912
  Transmission Date: 20080115
  Serious: Yes (Death, Hospitalization)
  Sender: FDA-Public Use
  Company Number: US-ROXANE LABORATORIES, INC-2007-DE-05448GD

PATIENT
  Age: 23 Year
  Sex: Male

DRUGS (2)
  1. PARACETAMOL [Suspect]
     Indication: PAIN
  2. ACETAMINOPHEN W/ CODEINE [Suspect]
     Indication: JOINT SPRAIN

REACTIONS (6)
  - ACCIDENTAL OVERDOSE [None]
  - ACUTE HEPATIC FAILURE [None]
  - ANOREXIA [None]
  - CHROMATURIA [None]
  - INFLUENZA LIKE ILLNESS [None]
  - PAIN [None]
